FAERS Safety Report 9213243 (Version 2)
Quarter: 2013Q4

REPORT INFORMATION
  Report Type: Spontaneous
  Country: GB (occurrence: GB)
  Receive Date: 20130405
  Receipt Date: 20131022
  Transmission Date: 20140711
  Serious: Yes (Hospitalization, Other)
  Sender: FDA-Public Use
  Company Number: GB-JNJFOC-20130318250

PATIENT
  Age: 17 Year
  Sex: Female
  Weight: 45 kg

DRUGS (1)
  1. MEBENDAZOLE [Suspect]
     Indication: ENTEROBIASIS
     Dosage: 1 TABLET
     Route: 048

REACTIONS (4)
  - Thrombocytopenia [Recovered/Resolved]
  - Contusion [Unknown]
  - Petechiae [Unknown]
  - Epistaxis [Unknown]
